FAERS Safety Report 14056915 (Version 9)
Quarter: 2019Q4

REPORT INFORMATION
  Report Type: Report from Study
  Country: KR (occurrence: KR)
  Receive Date: 20171006
  Receipt Date: 20191216
  Transmission Date: 20200122
  Serious: Yes (Hospitalization, Other)
  Sender: FDA-Public Use
  Company Number: KR-009507513-1710KOR001128

PATIENT
  Age: 56 Year
  Sex: Male
  Weight: 79.8 kg

DRUGS (17)
  1. TEICOCIN [Concomitant]
     Indication: INFECTION PROPHYLAXIS
     Dosage: 480 MG; QD(ONCE DAILY)
     Route: 042
     Dates: start: 20170630, end: 20170706
  2. ADIPAM [Concomitant]
     Indication: RASH
     Dosage: 1 TABLET, BID
     Route: 048
     Dates: start: 20170630, end: 20170804
  3. MEROPEN [Concomitant]
     Active Substance: MEROPENEM
     Indication: INFECTION PROPHYLAXIS
     Dosage: 1 GRAM, TID
     Route: 042
     Dates: start: 20170623, end: 20170709
  4. MAGMIL [Concomitant]
     Active Substance: MAGNESIUM HYDROXIDE
     Indication: CONSTIPATION
     Dosage: 1 TABLET, TID
     Route: 048
     Dates: start: 20170623, end: 20170731
  5. MYREPT [Concomitant]
     Active Substance: MYCOPHENOLATE MOFETIL
     Indication: ACUTE GRAFT VERSUS HOST DISEASE
     Dosage: 500 MG, BID(TWICE DAY)
     Route: 048
     Dates: start: 20170705, end: 20170712
  6. ADALAT [Concomitant]
     Active Substance: NIFEDIPINE
     Indication: HYPERTENSION
     Dosage: 30 MILLIGRAM, QD
     Route: 048
     Dates: start: 20170625
  7. AMBISOME [Concomitant]
     Active Substance: AMPHOTERICIN B
     Indication: INFECTION PROPHYLAXIS
     Dosage: 204 MG; QD(ONCE DAILY)
     Route: 042
     Dates: start: 20170630, end: 20170707
  8. NOXAFIL [Suspect]
     Active Substance: POSACONAZOLE
     Indication: ANTIFUNGAL PROPHYLAXIS
     Dosage: 300 MG, TWICE A DAY
     Route: 048
     Dates: start: 20170708, end: 20170708
  9. ULCERLMIN [Concomitant]
     Active Substance: SUCRALFATE
     Indication: GASTRITIS PROPHYLAXIS
     Dosage: 15 ML; TID(THREE TIMES)
     Route: 048
     Dates: start: 20170630, end: 20170711
  10. NOXAFIL [Suspect]
     Active Substance: POSACONAZOLE
     Dosage: 300 MG, ONCE A DAY
     Route: 048
     Dates: start: 20170709, end: 20170721
  11. FLASINYL [Concomitant]
     Indication: INFECTION PROPHYLAXIS
     Dosage: 2 TABLET, TID(THREE TIMES)
     Route: 048
     Dates: start: 20170707, end: 20170710
  12. METHYSOL [Concomitant]
     Indication: ACUTE GRAFT VERSUS HOST DISEASE
     Dosage: 80 MG, BID(TWICE DAY)
     Route: 042
     Dates: start: 20170630, end: 20170713
  13. PLAKON [Concomitant]
     Indication: ALLERGY PROPHYLAXIS
     Dosage: 3 MG DAILY; PRN(AS A NEEDED)
     Route: 042
     Dates: start: 20170623, end: 20170727
  14. ZOYLEX [Concomitant]
     Indication: INFECTION PROPHYLAXIS
     Dosage: 400 MG, BID(TWICE DAY)
     Route: 048
     Dates: start: 20170703, end: 20170801
  15. CIPROBAY (CIPROFLOXACIN HYDROCHLORIDE) [Concomitant]
     Active Substance: CIPROFLOXACIN HYDROCHLORIDE
     Indication: INFECTION PROPHYLAXIS
     Dosage: 250 MILLIGRAM, BID
     Route: 048
     Dates: start: 20170710, end: 20170713
  16. FOLIC ACID. [Concomitant]
     Active Substance: FOLIC ACID
     Indication: NEUTROPENIA
     Dosage: 1 MILLIGRAM, QD
     Route: 048
     Dates: start: 20170710, end: 20170804
  17. SEPTRIN [Concomitant]
     Active Substance: SULFAMETHOXAZOLE\TRIMETHOPRIM
     Indication: INFECTION PROPHYLAXIS
     Dosage: 2 TAB ONCE OF 2DAYS
     Route: 048
     Dates: start: 20170710, end: 20170717

REACTIONS (3)
  - Cerebral artery stenosis [Not Recovered/Not Resolved]
  - Diarrhoea [Recovered/Resolved]
  - Hypokalaemia [Recovered/Resolved]

NARRATIVE: CASE EVENT DATE: 20170720
